FAERS Safety Report 13535091 (Version 10)
Quarter: 2018Q2

REPORT INFORMATION
  Report Type: Spontaneous
  Country: CA (occurrence: CA)
  Receive Date: 20170511
  Receipt Date: 20180411
  Transmission Date: 20180711
  Serious: Yes (Other)
  Sender: FDA-Public Use
  Company Number: CA-CELLTRION INC.-2017CA003609

PATIENT

DRUGS (14)
  1. INFLECTRA [Suspect]
     Active Substance: INFLIXIMAB-DYYB
     Dosage: 750 MG, CYCLIC(EVERY 4 WEEKS)
     Route: 042
     Dates: start: 20170704, end: 20170826
  2. INFLECTRA [Suspect]
     Active Substance: INFLIXIMAB-DYYB
     Dosage: 760 MG, CYCLIC(EVERY 4 WEEKS)
     Route: 042
  3. METHOTREXATE. [Concomitant]
     Active Substance: METHOTREXATE
     Dosage: UNK, WEEKLY (FRIDAYS)
     Route: 058
     Dates: start: 201511
  4. FOLIC ACID. [Concomitant]
     Active Substance: FOLIC ACID
     Dosage: 5 MG, WEEKLY
     Route: 048
     Dates: start: 201511
  5. TRAZODONE [Concomitant]
     Active Substance: TRAZODONE HYDROCHLORIDE
     Dosage: 50 MG, DAILY
     Route: 065
     Dates: start: 20161104
  6. VITAMIN D                          /00107901/ [Concomitant]
     Active Substance: ERGOCALCIFEROL
     Dosage: UNK
     Route: 065
  7. INFLECTRA [Suspect]
     Active Substance: INFLIXIMAB-DYYB
     Dosage: 760 MG, CYCLIC(EVERY 4 WEEKS)
     Route: 042
     Dates: start: 20180214
  8. INFLECTRA [Suspect]
     Active Substance: INFLIXIMAB-DYYB
     Dosage: UNK
     Dates: start: 20180313
  9. PANTOLOC                           /01263204/ [Concomitant]
     Active Substance: PANTOPRAZOLE SODIUM
     Dosage: 40 MG, DAILY
     Route: 048
     Dates: start: 20161104
  10. INFLECTRA [Suspect]
     Active Substance: INFLIXIMAB-DYYB
     Dosage: 760 MG, CYCLIC(EVERY 4 WEEKS)
     Route: 042
  11. INFLECTRA [Suspect]
     Active Substance: INFLIXIMAB-DYYB
     Indication: CROHN^S DISEASE
     Dosage: 375 MG, EVERY 0,2,6 WEEKS THEN EVERY 8 WEEKS FOR 12 MONTHS
     Route: 042
     Dates: start: 20161206, end: 20170117
  12. INFLECTRA [Suspect]
     Active Substance: INFLIXIMAB-DYYB
     Dosage: 750 MG, EVERY 8 WEEKS
     Route: 042
     Dates: start: 20170314, end: 20170509
  13. INFLECTRA [Suspect]
     Active Substance: INFLIXIMAB-DYYB
     Dosage: 760 MG, CYCLIC(EVERY 4 WEEKS)
     Route: 042
     Dates: start: 20171024
  14. CALCIUM                            /00060701/ [Concomitant]
     Active Substance: CALCIUM
     Dosage: UNK
     Route: 065

REACTIONS (14)
  - Peripheral coldness [Unknown]
  - Swelling face [Recovered/Resolved]
  - Drug ineffective [Unknown]
  - Rash pruritic [Not Recovered/Not Resolved]
  - Malaise [Recovering/Resolving]
  - Nasopharyngitis [Not Recovered/Not Resolved]
  - Crohn^s disease [Recovering/Resolving]
  - Condition aggravated [Not Recovered/Not Resolved]
  - Skin exfoliation [Unknown]
  - Rash macular [Unknown]
  - Condition aggravated [Unknown]
  - Cough [Not Recovered/Not Resolved]
  - Nail discolouration [Unknown]
  - Dry skin [Not Recovered/Not Resolved]

NARRATIVE: CASE EVENT DATE: 20170308
